FAERS Safety Report 6617575-4 (Version None)
Quarter: 2010Q1

REPORT INFORMATION
  Report Type: 
  Country: None (occurrence: None)
  Receive Date: 20100308
  Receipt Date: 20090305
  Transmission Date: 20100710
  Serious: No
  Sender: FDA-Public Use
  Company Number: US-TYCO HEALTHCARE/MALLINCKRODT-T200900614

PATIENT
  Sex: Female

DRUGS (2)
  1. ACETAMINOPHEN AND HYDROCODONE BITARTRATE [Suspect]
     Indication: PAIN
     Dosage: 10/500 MG, 1/2 TABLET
     Route: 048
     Dates: start: 20090201, end: 20090201
  2. ACETAMINOPHEN AND HYDROCODONE BITARTRATE [Concomitant]
     Indication: PAIN
     Dosage: 7.5/500 MG, 1 DAILY PRN
     Route: 048

REACTIONS (3)
  - CHEST PAIN [None]
  - DRUG DIVERSION [None]
  - DRUG INEFFECTIVE [None]
